FAERS Safety Report 24204558 (Version 1)
Quarter: 2024Q3

REPORT INFORMATION
  Report Type: Other
  Country: TR (occurrence: TR)
  Receive Date: 20240813
  Receipt Date: 20240813
  Transmission Date: 20241017
  Serious: Yes (Hospitalization)
  Sender: ORBION PHARMACEUTICALS
  Company Number: TR-OrBion Pharmaceuticals Private Limited-2160334

PATIENT
  Age: 77 Year
  Sex: Male

DRUGS (1)
  1. DIVALPROEX SODIUM [Suspect]
     Active Substance: DIVALPROEX SODIUM
     Indication: Intentional overdose
     Route: 048

REACTIONS (13)
  - Intentional overdose [Recovered/Resolved]
  - Hypotension [Recovered/Resolved]
  - Toxicity to various agents [Recovered/Resolved]
  - Drug level above therapeutic [Recovered/Resolved]
  - Miosis [Recovered/Resolved]
  - Loss of consciousness [Recovered/Resolved]
  - Blood lactate dehydrogenase increased [Recovered/Resolved]
  - PCO2 decreased [Recovered/Resolved]
  - Aspartate aminotransferase decreased [Recovered/Resolved]
  - Blood calcium decreased [Recovered/Resolved]
  - Blood creatinine increased [Recovered/Resolved]
  - Protein total decreased [Recovered/Resolved]
  - Respiratory depression [Recovered/Resolved]
